FAERS Safety Report 12449742 (Version 1)
Quarter: 2016Q2

REPORT INFORMATION
  Report Type: Spontaneous
  Country: US (occurrence: US)
  Receive Date: 20160609
  Receipt Date: 20160609
  Transmission Date: 20160815
  Serious: No
  Sender: FDA-Public Use
  Company Number: US-JNJFOC-20160526515

PATIENT
  Age: 44 Year
  Sex: Male

DRUGS (6)
  1. CLOMIPRAMINE [Concomitant]
     Active Substance: CLOMIPRAMINE
     Route: 065
     Dates: start: 20160505
  2. CLOZAPINE. [Concomitant]
     Active Substance: CLOZAPINE
     Route: 065
     Dates: start: 20160505
  3. BENZOTROPINE [Concomitant]
     Active Substance: BENZTROPINE
     Route: 065
     Dates: start: 20160505
  4. RISPERIDONE ODT [Concomitant]
     Active Substance: RISPERIDONE
     Route: 065
     Dates: start: 20160505
  5. LEVOTHYROXIN [Concomitant]
     Active Substance: LEVOTHYROXINE
     Route: 065
     Dates: start: 20160505
  6. RISPERDAL CONSTA [Suspect]
     Active Substance: RISPERIDONE
     Indication: SCHIZOPHRENIA
     Route: 030
     Dates: start: 20160516

REACTIONS (3)
  - Drug dose omission [Unknown]
  - Product quality issue [Unknown]
  - Device leakage [Unknown]

NARRATIVE: CASE EVENT DATE: 20160525
